FAERS Safety Report 11167206 (Version 1)
Quarter: 2015Q2

REPORT INFORMATION
  Report Type: Spontaneous
  Country: BR (occurrence: BR)
  Receive Date: 20150605
  Receipt Date: 20150605
  Transmission Date: 20150821
  Serious: Yes (Hospitalization)
  Sender: FDA-Public Use
  Company Number: BR-009507513-1506BRA001171

PATIENT
  Age: 77 Year
  Sex: Female
  Weight: 57 kg

DRUGS (2)
  1. VYTORIN [Suspect]
     Active Substance: EZETIMIBE\SIMVASTATIN
     Indication: BLOOD CHOLESTEROL INCREASED
     Dosage: 10/20 MG, QD
     Route: 048
     Dates: start: 2013, end: 201407
  2. ANGIPRESS (ATENOLOL) [Concomitant]
     Active Substance: ATENOLOL
     Indication: BLOOD PRESSURE FLUCTUATION
     Dosage: 25 MG, QD
     Route: 048
     Dates: start: 2005

REACTIONS (1)
  - Intestinal fistula [Recovered/Resolved]

NARRATIVE: CASE EVENT DATE: 201409
